FAERS Safety Report 10522004 (Version 1)
Quarter: 2014Q4

REPORT INFORMATION
  Report Type: Spontaneous
  Country: US (occurrence: None)
  Receive Date: 20141014
  Receipt Date: 20141014
  Transmission Date: 20150528
  Serious: Yes (Hospitalization)
  Sender: FDA-Public Use
  Company Number: None

PATIENT
  Age: 49 Year
  Sex: Male
  Weight: 104.5 kg

DRUGS (2)
  1. ADALIMUMAB [Suspect]
     Active Substance: ADALIMUMAB
     Indication: DEEP VEIN THROMBOSIS
     Route: 058
     Dates: start: 20101020, end: 20140515
  2. ADALIMUMAB [Suspect]
     Active Substance: ADALIMUMAB
     Indication: PULMONARY EMBOLISM
     Route: 058
     Dates: start: 20101020, end: 20140515

REACTIONS (2)
  - Deep vein thrombosis [None]
  - Pulmonary embolism [None]

NARRATIVE: CASE EVENT DATE: 20140529
